FAERS Safety Report 8678800 (Version 4)
Quarter: 2012Q4

REPORT INFORMATION
  Report Type: 
  Country: US (occurrence: US)
  Receive Date: 20120723
  Receipt Date: 20121128
  Transmission Date: 20130627
  Serious: Yes (Hospitalization)
  Sender: FDA-Public Use
  Company Number: US-GLAXOSMITHKLINE-A0984788A

PATIENT
  Age: 39 Year
  Sex: Female
  Weight: 95 kg

DRUGS (5)
  1. AVANDAMET [Suspect]
     Indication: TYPE 2 DIABETES MELLITUS
     Dosage: 1TAB Per day
     Route: 048
  2. AVANDIA [Suspect]
     Indication: TYPE 2 DIABETES MELLITUS
     Dosage: 2MG Per day
     Route: 048
  3. INSULIN [Concomitant]
  4. EFFEXOR [Concomitant]
  5. METFORMIN [Concomitant]

REACTIONS (13)
  - Silent myocardial infarction [Unknown]
  - Myocardial infarction [Unknown]
  - Chest pain [Unknown]
  - Cardiac flutter [Unknown]
  - Electrocardiogram abnormal [Unknown]
  - Hypertension [Not Recovered/Not Resolved]
  - Fatigue [Not Recovered/Not Resolved]
  - Dyspnoea [Not Recovered/Not Resolved]
  - Palpitations [Not Recovered/Not Resolved]
  - Chest discomfort [Unknown]
  - Depression [Unknown]
  - Anxiety [Unknown]
  - Post-traumatic stress disorder [Unknown]
